FAERS Safety Report 8545683-X (Version None)
Quarter: 2012Q3

REPORT INFORMATION
  Report Type: 
  Country: None (occurrence: None)
  Receive Date: 20120727
  Receipt Date: 20120719
  Transmission Date: 20120928
  Serious: Yes (Other)
  Sender: FDA-Public Use
  Company Number: PHHY2012US062590

PATIENT
  Age: 68 Year
  Sex: Female

DRUGS (2)
  1. BUFFERIN [Suspect]
     Indication: MIGRAINE
     Dosage: 6 DF, QD
     Route: 048
     Dates: start: 19870101, end: 19940101
  2. ZIAC [Concomitant]
     Indication: HYPERTENSION
     Dates: start: 19930101

REACTIONS (4)
  - PRECANCEROUS CELLS PRESENT [None]
  - BLOOD PRESSURE INCREASED [None]
  - POLYP [None]
  - INCORRECT DRUG ADMINISTRATION DURATION [None]
